FAERS Safety Report 13657251 (Version 1)
Quarter: 2017Q2

REPORT INFORMATION
  Report Type: Spontaneous
  Country: CN (occurrence: CN)
  Receive Date: 20170615
  Receipt Date: 20170615
  Transmission Date: 20170830
  Serious: Yes (Other)
  Sender: FDA-Public Use
  Company Number: CN-MYLANLABS-2017M1035915

PATIENT

DRUGS (3)
  1. MEZLOCILLIN [Concomitant]
     Active Substance: MEZLOCILLIN
     Indication: PRODUCT USED FOR UNKNOWN INDICATION
     Route: 041
     Dates: start: 20120701
  2. SODIUM CHLORIDE. [Concomitant]
     Active Substance: SODIUM CHLORIDE
     Indication: PRODUCT USED FOR UNKNOWN INDICATION
     Dosage: 100 ML OF 0.9% SODIUM CHLORIDE
     Route: 041
  3. LANSOPRAZOLE. [Suspect]
     Active Substance: LANSOPRAZOLE
     Indication: PRODUCT USED FOR UNKNOWN INDICATION
     Route: 041
     Dates: start: 20120627

REACTIONS (4)
  - Dyspnoea [Recovering/Resolving]
  - Chills [Recovering/Resolving]
  - Laryngeal oedema [Recovering/Resolving]
  - Pyrexia [Recovering/Resolving]
